FAERS Safety Report 24684501 (Version 1)
Quarter: 2024Q4

REPORT INFORMATION
  Report Type: Spontaneous
  Country: US (occurrence: US)
  Receive Date: 20241202
  Receipt Date: 20241202
  Transmission Date: 20250115
  Serious: No
  Sender: AJANTA PHARMA USA INC
  Company Number: US-AJANTA-2024AJA00170

PATIENT
  Age: 70 Year
  Sex: Male
  Weight: 190 kg

DRUGS (2)
  1. CHOLESTYRAMINE [Suspect]
     Active Substance: CHOLESTYRAMINE
     Indication: Frequent bowel movements
     Route: 048
     Dates: start: 20241010, end: 20241010
  2. CHOLESTYRAMINE [Suspect]
     Active Substance: CHOLESTYRAMINE
     Route: 048
     Dates: start: 20241011

REACTIONS (5)
  - Oropharyngeal discomfort [Unknown]
  - Product use complaint [Unknown]
  - Product physical consistency issue [Unknown]
  - Product use in unapproved indication [Unknown]
  - Product substitution issue [Unknown]

NARRATIVE: CASE EVENT DATE: 20241010
